FAERS Safety Report 8096513-4 (Version None)
Quarter: 2012Q1

REPORT INFORMATION
  Report Type: 
  Country: None (occurrence: None)
  Receive Date: 20120129
  Receipt Date: 20111216
  Transmission Date: 20120608
  Serious: No
  Sender: FDA-Public Use
  Company Number: US-ABBOTT-11P-163-0880900-00

PATIENT
  Age: 52 Year
  Sex: Female

DRUGS (4)
  1. ESTRADIOL [Concomitant]
     Indication: HORMONE REPLACEMENT THERAPY
     Dosage: 1 MG DAILY
  2. LEXAPRO [Concomitant]
     Indication: PRODUCT USED FOR UNKNOWN INDICATION
     Dosage: 15 MG DAILY
  3. HUMIRA [Suspect]
     Indication: PSORIASIS
     Dosage: DAY 1
     Dates: start: 20111203, end: 20111203
  4. TRIAMCINOLONE [Concomitant]
     Indication: PRODUCT USED FOR UNKNOWN INDICATION
     Dosage: DOSAGE NR; APPLY MOST DAYS
     Route: 061

REACTIONS (4)
  - SINUSITIS [None]
  - HYPERSOMNIA [None]
  - FATIGUE [None]
  - IMPAIRED WORK ABILITY [None]
